FAERS Safety Report 8145287-7 (Version None)
Quarter: 2012Q1

REPORT INFORMATION
  Report Type: 
  Country: None (occurrence: None)
  Receive Date: 20120217
  Receipt Date: 20120214
  Transmission Date: 20120608
  Serious: Yes (Death, Other)
  Sender: FDA-Public Use
  Company Number: PHHY2012CZ013205

PATIENT
  Age: 62 Year
  Sex: Female

DRUGS (8)
  1. CARBOPLATIN [Suspect]
     Dosage: 6 AUC
     Dates: start: 20050901
  2. CARBOPLATIN [Suspect]
     Dosage: 6 AUC
     Dates: start: 20060901
  3. PACLITAXEL [Suspect]
     Dosage: 175 MG/M2, UNK
     Dates: start: 20050901
  4. CARBOPLATIN [Suspect]
     Indication: CHEMOTHERAPY
     Dosage: 6 AUC
     Dates: start: 20040101
  5. CARBOPLATIN [Suspect]
     Dosage: 6 AUC
     Dates: start: 20070601, end: 20071001
  6. PACLITAXEL [Suspect]
     Dosage: 175 MG/M2, UNK
     Dates: start: 20070601, end: 20071001
  7. PACLITAXEL [Suspect]
     Indication: CHEMOTHERAPY
     Dosage: 175 MG/M2, UNK
     Dates: start: 20040101
  8. PACLITAXEL [Suspect]
     Dosage: 175 MG/M2, UNK
     Dates: start: 20060901

REACTIONS (8)
  - EPISTAXIS [None]
  - DIZZINESS [None]
  - ACUTE MYELOID LEUKAEMIA [None]
  - DEATH [None]
  - BREAST CANCER RECURRENT [None]
  - PANCYTOPENIA [None]
  - ASTHENIA [None]
  - DYSPNOEA [None]
